FAERS Safety Report 21801383 (Version 1)
Quarter: 2022Q4

REPORT INFORMATION
  Report Type: Report from Study
  Country: TN (occurrence: TR)
  Receive Date: 20221230
  Receipt Date: 20221230
  Transmission Date: 20230113
  Serious: Yes (Other)
  Sender: FDA-Public Use
  Company Number: TN-TEVA-2022-TN-2841460

PATIENT
  Sex: Female

DRUGS (1)
  1. COPAXONE [Suspect]
     Active Substance: GLATIRAMER ACETATE
     Indication: Product used for unknown indication
     Dosage: FORM STRENGTH AND UNIT DOSE: 40 MG/ML
     Route: 065
     Dates: start: 20190103

REACTIONS (10)
  - Oxygen saturation decreased [Recovered/Resolved]
  - Arthralgia [Recovered/Resolved]
  - Dizziness [Recovered/Resolved]
  - Somnolence [Recovered/Resolved]
  - Dyspnoea [Recovered/Resolved]
  - Blood pressure decreased [Recovered/Resolved]
  - Heart rate decreased [Recovered/Resolved]
  - Injection site pain [Unknown]
  - Injection site swelling [Unknown]
  - Product after taste [Recovered/Resolved]
